FAERS Safety Report 11776800 (Version 1)
Quarter: 2015Q4

REPORT INFORMATION
  Report Type: Spontaneous
  Country: US (occurrence: US)
  Receive Date: 20151125
  Receipt Date: 20151125
  Transmission Date: 20160304
  Serious: No
  Sender: FDA-Public Use
  Company Number: US-TEVA-543660USA

PATIENT
  Sex: Male

DRUGS (1)
  1. BUDESONIDE. [Suspect]
     Active Substance: BUDESONIDE
     Route: 065

REACTIONS (4)
  - Headache [Unknown]
  - Nausea [Unknown]
  - Tremor [Unknown]
  - Asthenia [Unknown]
